FAERS Safety Report 16877357 (Version 1)
Quarter: 2019Q4

REPORT INFORMATION
  Report Type: Report from Study
  Country: None (occurrence: US)
  Receive Date: 20191002
  Receipt Date: 20191002
  Transmission Date: 20200122
  Serious: Yes (Other)
  Sender: FDA-Public Use
  Company Number: US-ABBVIE-19K-163-2944555-00

PATIENT
  Age: 71 Year
  Sex: Female

DRUGS (1)
  1. SYNTHROID [Suspect]
     Active Substance: LEVOTHYROXINE SODIUM
     Indication: PRODUCT USED FOR UNKNOWN INDICATION
     Route: 048
     Dates: start: 1980

REACTIONS (5)
  - Heart rate irregular [Unknown]
  - Thyroid operation [Unknown]
  - Muscle spasms [Unknown]
  - Nervousness [Unknown]
  - Arthritis [Unknown]

NARRATIVE: CASE EVENT DATE: 201011
